FAERS Safety Report 4269986-2 (Version None)
Quarter: 2004Q1

REPORT INFORMATION
  Report Type: 
  Country: None (occurrence: None)
  Receive Date: 20040113
  Receipt Date: 20040113
  Transmission Date: 20041129
  Serious: Yes (Hospitalization)
  Sender: FDA-Public Use
  Company Number: None

PATIENT
  Age: 73 Year
  Sex: Male

DRUGS (7)
  1. METOPROLOL [Suspect]
     Indication: HYPERTENSION
     Dosage: 100 MG BOD
     Dates: start: 19950701
  2. DIGOXIN [Suspect]
     Indication: CARDIAC FAILURE CONGESTIVE
     Dosage: 0.25 MG QD
     Dates: start: 19950701
  3. ALBUTEROL [Concomitant]
  4. LORTAB [Concomitant]
  5. WARFARIN SODIUM [Concomitant]
  6. PAROXETINE [Concomitant]
  7. METOCLOPRAMIDE [Concomitant]

REACTIONS (2)
  - BRADYCARDIA [None]
  - DIZZINESS [None]
